FAERS Safety Report 17012554 (Version 2)
Quarter: 2019Q4

REPORT INFORMATION
  Report Type: Spontaneous
  Country: US (occurrence: US)
  Receive Date: 20191109
  Receipt Date: 20191113
  Transmission Date: 20200122
  Serious: Yes (Death)
  Sender: FDA-Public Use
  Company Number: US-ROCHE-2459378

PATIENT
  Sex: Female

DRUGS (19)
  1. OPDIVO [Concomitant]
     Active Substance: NIVOLUMAB
  2. AVASTIN [Suspect]
     Active Substance: BEVACIZUMAB
     Indication: OVARIAN CANCER
     Route: 042
     Dates: start: 20190806
  3. NEUPOGEN [Concomitant]
     Active Substance: FILGRASTIM
  4. DESLORATADINE. [Concomitant]
     Active Substance: DESLORATADINE
  5. MIRALAX [Concomitant]
     Active Substance: POLYETHYLENE GLYCOL 3350
  6. NEXIUM [Concomitant]
     Active Substance: ESOMEPRAZOLE MAGNESIUM
  7. PROCRIT [Concomitant]
     Active Substance: ERYTHROPOIETIN
  8. ACETAZOLAMIDE. [Concomitant]
     Active Substance: ACETAZOLAMIDE
  9. COLACE [Concomitant]
     Active Substance: DOCUSATE SODIUM
  10. THYMOSIN [Concomitant]
     Active Substance: THYMOSIN
  11. ETOPOSIDE. [Concomitant]
     Active Substance: ETOPOSIDE
  12. MEGESTROL [Concomitant]
     Active Substance: MEGESTROL
  13. REGLAN [Concomitant]
     Active Substance: METOCLOPRAMIDE HYDROCHLORIDE
  14. PROCHLORPERAZINE. [Concomitant]
     Active Substance: PROCHLORPERAZINE
  15. AVASTIN [Concomitant]
     Active Substance: BEVACIZUMAB
  16. SYNTHROID [Concomitant]
     Active Substance: LEVOTHYROXINE SODIUM
  17. VENOFER [Concomitant]
     Active Substance: IRON SUCROSE
  18. AMILORIDE [Concomitant]
     Active Substance: AMILORIDE
  19. CHLOROQUINE. [Concomitant]
     Active Substance: CHLOROQUINE

REACTIONS (2)
  - White blood cell count decreased [Fatal]
  - Haemoglobin decreased [Fatal]
